FAERS Safety Report 21402597 (Version 2)
Quarter: 2022Q4

REPORT INFORMATION
  Report Type: Spontaneous
  Country: BR (occurrence: BR)
  Receive Date: 20221003
  Receipt Date: 20221018
  Transmission Date: 20230112
  Serious: Yes (Other)
  Sender: FDA-Public Use
  Company Number: BR-UPSHER-SMITH LABORATORIES, LLC-2022USL00761

PATIENT
  Age: 28 Year
  Sex: Male

DRUGS (9)
  1. TESTOSTERONE [Suspect]
     Active Substance: TESTOSTERONE
     Indication: Transgender hormonal therapy
     Dosage: 2 ML EVERY 15 DAYS
     Route: 065
     Dates: start: 201812, end: 201904
  2. TESTOSTERONE [Suspect]
     Active Substance: TESTOSTERONE
     Dosage: 2 ML EVERY 20 DAYS
     Route: 065
     Dates: start: 201904
  3. TOPIRAMATE [Concomitant]
     Active Substance: TOPIRAMATE
     Dosage: 25 MG
     Route: 065
  4. FERROUS SULFATE [Concomitant]
     Active Substance: FERROUS SULFATE
     Route: 065
  5. LOSARTAN [Concomitant]
     Active Substance: LOSARTAN
     Dosage: 100 MG
     Route: 065
  6. ATENOLOL [Concomitant]
     Active Substance: ATENOLOL
     Dosage: 50 MG
     Route: 065
  7. INDAPINEM [Concomitant]
     Dosage: 3 MG
     Route: 065
  8. ATORVASTATIN [Concomitant]
     Active Substance: ATORVASTATIN
     Route: 065
  9. VENLAFAXINE [Concomitant]
     Active Substance: VENLAFAXINE HYDROCHLORIDE
     Route: 065

REACTIONS (4)
  - Hypertension [Unknown]
  - Chronic kidney disease [Unknown]
  - Hypertensive crisis [Unknown]
  - Palpitations [Unknown]

NARRATIVE: CASE EVENT DATE: 20200701
